FAERS Safety Report 7494816-5 (Version None)
Quarter: 2011Q2

REPORT INFORMATION
  Report Type: 
  Country: None (occurrence: None)
  Receive Date: 20110520
  Receipt Date: 20110512
  Transmission Date: 20111010
  Serious: Yes (Other)
  Sender: FDA-Public Use
  Company Number: A0928062A

PATIENT
  Sex: Female

DRUGS (1)
  1. AVANDAMET [Suspect]
     Indication: DIABETES MELLITUS
     Route: 048
     Dates: start: 20070327, end: 20101015

REACTIONS (6)
  - ARTERIAL STENOSIS [None]
  - CEREBRAL ISCHAEMIA [None]
  - MYOCARDIAL INFARCTION [None]
  - ANGIOPLASTY [None]
  - BRAIN INJURY [None]
  - CORONARY ARTERY BYPASS [None]
